FAERS Safety Report 6523173-3 (Version None)
Quarter: 2009Q4

REPORT INFORMATION
  Report Type: 
  Country: None (occurrence: None)
  Receive Date: 20091222
  Receipt Date: 20091211
  Transmission Date: 20100525
  Serious: Yes (Life-Threatening, Hospitalization)
  Sender: FDA-Public Use
  Company Number: ADR53612009

PATIENT
  Age: 73 Year
  Sex: Male

DRUGS (2)
  1. AMLODIPINE [Suspect]
     Indication: HYPERTENSION
     Dosage: 5 MG MILLIGRAM(S), 1 IN DAY ORAL
     Route: 048
  2. OMEPRAZOL [Concomitant]

REACTIONS (1)
  - LOSS OF CONSCIOUSNESS [None]
